FAERS Safety Report 4292683-4 (Version None)
Quarter: 2004Q1

REPORT INFORMATION
  Report Type: 
  Country: None (occurrence: None)
  Receive Date: 20040126
  Receipt Date: 20031008
  Transmission Date: 20041129
  Serious: No
  Sender: FDA-Public Use
  Company Number: USA031049364

PATIENT
  Age: 54 Year
  Sex: Female

DRUGS (11)
  1. FORTEO [Suspect]
     Dates: start: 20030926, end: 20031005
  2. ENBREL [Concomitant]
  3. AMITRIPTYLINE HCL [Concomitant]
  4. FOLTX [Concomitant]
  5. APO-METOPROLOL (METOPROLOL TARTRATE) [Concomitant]
  6. ZOCOR [Concomitant]
  7. AZULFIDINE [Concomitant]
  8. METHOTREXATE [Concomitant]
  9. CITRACAL (CALCIUM CITRATE) [Concomitant]
  10. MULTI-VITAMINS [Concomitant]
  11. ASPIRIN [Concomitant]

REACTIONS (1)
  - CHILLS [None]
